FAERS Safety Report 9319782 (Version 1)
Quarter: 2013Q2

REPORT INFORMATION
  Report Type: Spontaneous
  Country: CN (occurrence: CN)
  Receive Date: 20130530
  Receipt Date: 20130530
  Transmission Date: 20140414
  Serious: Yes (Other)
  Sender: FDA-Public Use
  Company Number: CN-ASTRAZENECA-2013SE37973

PATIENT
  Sex: Female

DRUGS (1)
  1. PLENDIL [Suspect]
     Indication: HYPERTENSION
     Route: 048
     Dates: start: 20060101, end: 2012

REACTIONS (4)
  - Convulsion [Recovered/Resolved]
  - Intentional drug misuse [Unknown]
  - Muscle twitching [Recovered/Resolved]
  - Oedema peripheral [Recovered/Resolved]
